FAERS Safety Report 10567248 (Version 1)
Quarter: 2014Q4

REPORT INFORMATION
  Report Type: Spontaneous
  Country: IN (occurrence: IN)
  Receive Date: 20141105
  Receipt Date: 20141105
  Transmission Date: 20150529
  Serious: Yes (Other)
  Sender: FDA-Public Use
  Company Number: IN-MYLANLABS-2014M1009415

PATIENT
  Age: 45 Year
  Sex: Female

DRUGS (2)
  1. CLOZAPINE. [Suspect]
     Active Substance: CLOZAPINE
     Indication: OFF LABEL USE
  2. CLOZAPINE. [Suspect]
     Active Substance: CLOZAPINE
     Indication: TARDIVE DYSKINESIA
     Dosage: DOSE WAS ESCALATED GRADUALLY STARTING FROM 12.5 MG/DAY UP TO 300 MG/DAY
     Route: 065

REACTIONS (4)
  - Pleural effusion [Recovered/Resolved]
  - Leukocytosis [None]
  - Pericardial effusion [Recovered/Resolved]
  - Pericarditis [Recovered/Resolved]
